FAERS Safety Report 18684160 (Version 1)
Quarter: 2020Q4

REPORT INFORMATION
  Report Type: Spontaneous
  Country: US (occurrence: US)
  Receive Date: 20201230
  Receipt Date: 20201230
  Transmission Date: 20210114
  Serious: Yes (Death, Hospitalization, Other)
  Sender: FDA-Public Use
  Company Number: US-ASTRAZENECA-2020SF74292

PATIENT
  Age: 30 Year
  Sex: Female

DRUGS (4)
  1. ESOMEPRAZOLE (ER) [Suspect]
     Active Substance: ESOMEPRAZOLE
     Route: 065
  2. ACETAMINOPHEN. [Suspect]
     Active Substance: ACETAMINOPHEN
     Route: 065
  3. DIPHENHYDRAMINE. [Suspect]
     Active Substance: DIPHENHYDRAMINE
     Route: 065
  4. LOPERAMIDE [Suspect]
     Active Substance: LOPERAMIDE
     Route: 065

REACTIONS (3)
  - Exposure during pregnancy [Unknown]
  - Toxicity to various agents [Fatal]
  - Completed suicide [Fatal]
